FAERS Safety Report 22056658 (Version 2)
Quarter: 2023Q1

REPORT INFORMATION
  Report Type: Spontaneous
  Country: EG (occurrence: EG)
  Receive Date: 20230302
  Receipt Date: 20230307
  Transmission Date: 20230417
  Serious: Yes (Hospitalization, Disabling, Other)
  Sender: FDA-Public Use
  Company Number: EG-NOVOPROD-1027012

PATIENT
  Age: 52 Year
  Sex: Male
  Weight: 70 kg

DRUGS (6)
  1. INSULIN HUMAN [Suspect]
     Active Substance: INSULIN HUMAN
     Dosage: UNK
  2. INSULIN HUMAN [Suspect]
     Active Substance: INSULIN HUMAN
     Indication: Diabetes mellitus
     Dosage: 60 IU, QD (40 U IN MORNING AND 20 U IN NIGHT)
     Route: 058
  3. CIDOPHAGE [Concomitant]
     Indication: Diabetes mellitus
     Dosage: 1 TABLET AFTER LUNCH
     Route: 048
  4. BENFOTIAMINE\CYANOCOBALAMIN\PYRIDOXINE HYDROCHLORIDE [Concomitant]
     Active Substance: BENFOTIAMINE\CYANOCOBALAMIN\PYRIDOXINE HYDROCHLORIDE
     Indication: Vitamin supplementation
     Dosage: 1 TABLET AFTER BREAKFAST
     Route: 048
  5. ASPIRIN [Concomitant]
     Active Substance: ASPIRIN
     Indication: Thrombosis
     Dosage: 1 TABLET AFTER BREAKFAST
     Route: 048
  6. PLAVIX [Concomitant]
     Active Substance: CLOPIDOGREL BISULFATE
     Indication: Heart rate abnormal
     Dosage: 1 TABLET AFTER DINNER
     Route: 048

REACTIONS (6)
  - Blood pressure difference of extremities [Unknown]
  - Coronary arterial stent insertion [Recovered/Resolved]
  - Eye disorder [Not Recovered/Not Resolved]
  - Hyperglycaemia [Not Recovered/Not Resolved]
  - Diabetic retinopathy [Unknown]
  - Treatment noncompliance [Not Recovered/Not Resolved]
